FAERS Safety Report 7430551-7 (Version None)
Quarter: 2011Q2

REPORT INFORMATION
  Report Type: 
  Country: None (occurrence: None)
  Receive Date: 20110421
  Receipt Date: 20100329
  Transmission Date: 20111010
  Serious: No
  Sender: FDA-Public Use
  Company Number: US-ASTRAZENECA-2010SE14105

PATIENT

DRUGS (2)
  1. CIMETIDINE [Concomitant]
  2. METOPROLOL SUCCINATE EXTENDED RELEASE [Suspect]
     Route: 048

REACTIONS (6)
  - CHILLS [None]
  - INSOMNIA [None]
  - ANGER [None]
  - PERIPHERAL COLDNESS [None]
  - PALPITATIONS [None]
  - NAUSEA [None]
